FAERS Safety Report 8484525 (Version 6)
Quarter: 2016Q2

REPORT INFORMATION
  Report Type: Spontaneous
  Country: US (occurrence: US)
  Receive Date: 20120330
  Receipt Date: 20160401
  Transmission Date: 20160815
  Serious: Yes (Other)
  Sender: FDA-Public Use
  Company Number: US-PFIZER INC-2012078327

PATIENT
  Sex: Female

DRUGS (5)
  1. TOVIAZ [Suspect]
     Active Substance: FESOTERODINE FUMARATE
     Dosage: UNK
  2. DETROL [Suspect]
     Active Substance: TOLTERODINE TARTRATE
     Dosage: 2 MG, UNK
  3. VESICARE [Suspect]
     Active Substance: SOLIFENACIN SUCCINATE
     Dosage: UNK
  4. DETROL LA [Suspect]
     Active Substance: TOLTERODINE TARTRATE
     Dosage: 4 MG, DAILY
     Dates: end: 2013
  5. OXYBUTYNIN HYDROCHLORIDE [Suspect]
     Active Substance: OXYBUTYNIN CHLORIDE
     Dosage: UNK

REACTIONS (21)
  - Confusional state [Unknown]
  - Amnesia [Unknown]
  - Constipation [Unknown]
  - Dehydration [Unknown]
  - Chest pain [Not Recovered/Not Resolved]
  - Drug ineffective [Unknown]
  - Flatulence [Recovered/Resolved]
  - Oropharyngeal pain [Not Recovered/Not Resolved]
  - Abdominal pain upper [Not Recovered/Not Resolved]
  - Dry mouth [Unknown]
  - Haemorrhoids [Unknown]
  - Abdominal pain upper [Unknown]
  - Oral pain [Unknown]
  - Extrasystoles [Recovered/Resolved]
  - Vision blurred [Unknown]
  - Condition aggravated [Unknown]
  - Eructation [Unknown]
  - Hypertension [Recovered/Resolved]
  - Dry skin [Unknown]
  - Abdominal distension [Unknown]
  - Gastrooesophageal reflux disease [Not Recovered/Not Resolved]
